FAERS Safety Report 7554216-6 (Version None)
Quarter: 2011Q2

REPORT INFORMATION
  Report Type: 
  Country: None (occurrence: None)
  Receive Date: 20110617
  Receipt Date: 20110613
  Transmission Date: 20111010
  Serious: Yes (Other)
  Sender: FDA-Public Use
  Company Number: US-PFIZER INC-US-WYE-H05080308

PATIENT
  Sex: Female
  Weight: 66 kg

DRUGS (4)
  1. PREMPHASE (PREMARIN;CYCRIN 14/14) [Suspect]
     Indication: HORMONE REPLACEMENT THERAPY
     Dosage: 0.625 TO 5MG, CYCLIC
     Route: 048
     Dates: start: 19961101, end: 20000501
  2. PREMARIN [Suspect]
     Indication: HORMONE REPLACEMENT THERAPY
     Dosage: CYCLIC
     Route: 048
     Dates: start: 19961101, end: 20000501
  3. PREMPRO [Suspect]
     Indication: HORMONE REPLACEMENT THERAPY
     Dosage: UNK
     Route: 048
     Dates: start: 19960401, end: 19961101
  4. PROVERA [Suspect]
     Indication: HORMONE REPLACEMENT THERAPY
     Dosage: CYCLIC
     Route: 048
     Dates: start: 19961101, end: 20000501

REACTIONS (1)
  - BREAST CANCER FEMALE [None]
